FAERS Safety Report 23055867 (Version 2)
Quarter: 2023Q4

REPORT INFORMATION
  Report Type: Spontaneous
  Country: LU (occurrence: LU)
  Receive Date: 20231011
  Receipt Date: 20231106
  Transmission Date: 20240110
  Serious: Yes (Other)
  Sender: FDA-Public Use
  Company Number: None

PATIENT
  Sex: Female
  Weight: 54 kg

DRUGS (5)
  1. EFFEXOR XR [Interacting]
     Active Substance: VENLAFAXINE HYDROCHLORIDE
     Indication: Product used for unknown indication
     Dosage: 75 MILLIGRAM, QD
     Route: 048
     Dates: start: 20230714
  2. GRAPEFRUIT [Interacting]
     Active Substance: GRAPEFRUIT
     Indication: Product used for unknown indication
     Dosage: 0.5 GRAPEFRUIT EVERY 3 DAYS
     Route: 048
     Dates: start: 20230906, end: 20230915
  3. PIRACETAM [Concomitant]
     Active Substance: PIRACETAM
     Dosage: 800 MILLIGRAM, QD
     Route: 048
  4. Temesta [Concomitant]
     Dosage: 1 MILLIGRAM, QD, IN THE EVENING
     Route: 048
  5. MAGNESIUM [Concomitant]
     Active Substance: MAGNESIUM
     Dosage: 600 MILLIGRAM, QD
     Route: 048

REACTIONS (24)
  - Terminal state [Recovering/Resolving]
  - Pain of skin [Recovering/Resolving]
  - Vision blurred [Recovering/Resolving]
  - Dysuria [Recovering/Resolving]
  - Food interaction [Recovered/Resolved]
  - Dyspnoea [Recovering/Resolving]
  - Vomiting [Recovering/Resolving]
  - Weight decreased [Recovering/Resolving]
  - Abnormal dreams [Recovering/Resolving]
  - Coordination abnormal [Recovering/Resolving]
  - Myoclonus [Recovering/Resolving]
  - Agitation [Recovering/Resolving]
  - Aggression [Recovering/Resolving]
  - Nausea [Recovering/Resolving]
  - Hallucination, olfactory [Recovering/Resolving]
  - Arthralgia [Recovering/Resolving]
  - Blood pressure fluctuation [Recovering/Resolving]
  - Disturbance in attention [Recovering/Resolving]
  - Fatigue [Recovering/Resolving]
  - Chills [Recovering/Resolving]
  - Pyrexia [Recovering/Resolving]
  - Decreased appetite [Recovering/Resolving]
  - Tachycardia [Recovering/Resolving]
  - Myalgia [Recovering/Resolving]

NARRATIVE: CASE EVENT DATE: 20230906
